FAERS Safety Report 11887954 (Version 1)
Quarter: 2016Q1

REPORT INFORMATION
  Report Type: Spontaneous
  Country: US (occurrence: US)
  Receive Date: 20160105
  Receipt Date: 20160105
  Transmission Date: 20160526
  Serious: No
  Sender: FDA-Public Use
  Company Number: US-DRREDDYS-USA/USA/15/0053799

PATIENT
  Age: 57 Year
  Sex: Male

DRUGS (5)
  1. HABITROL [Suspect]
     Active Substance: NICOTINE
     Indication: SMOKING CESSATION THERAPY
     Route: 062
  2. NAVANE [Concomitant]
     Active Substance: THIOTHIXENE
     Indication: PRODUCT USED FOR UNKNOWN INDICATION
     Route: 065
  3. BENADRYL [Concomitant]
     Active Substance: DIPHENHYDRAMINE HYDROCHLORIDE
     Indication: PRODUCT USED FOR UNKNOWN INDICATION
     Route: 065
  4. LORAZEPAM. [Concomitant]
     Active Substance: LORAZEPAM
     Indication: PRODUCT USED FOR UNKNOWN INDICATION
     Route: 065
  5. PHYSOSTIGMINE [Concomitant]
     Active Substance: PHYSOSTIGMINE
     Indication: PRODUCT USED FOR UNKNOWN INDICATION
     Route: 065

REACTIONS (3)
  - Abnormal dreams [Recovered/Resolved]
  - Nicotine dependence [Not Recovered/Not Resolved]
  - Product quality issue [Unknown]
